FAERS Safety Report 9379699 (Version 1)
Quarter: 2013Q2

REPORT INFORMATION
  Report Type: Spontaneous
  Country: AU (occurrence: None)
  Receive Date: 20130627
  Receipt Date: 20130627
  Transmission Date: 20140414
  Serious: Yes (Other)
  Sender: FDA-Public Use
  Company Number: 2013P1008722

PATIENT
  Sex: Male
  Weight: 2.3 kg

DRUGS (2)
  1. AMPHETAMINE [Suspect]
  2. NICOTINE [Suspect]

REACTIONS (4)
  - Maternal drugs affecting foetus [None]
  - Metabolic acidosis [None]
  - Hypoglycaemia [None]
  - Feeding disorder neonatal [None]
